FAERS Safety Report 10082565 (Version 1)
Quarter: 2014Q2

REPORT INFORMATION
  Report Type: Spontaneous
  Country: US (occurrence: US)
  Receive Date: 20140416
  Receipt Date: 20140416
  Transmission Date: 20141212
  Serious: No
  Sender: FDA-Public Use
  Company Number: US-MALLINCKRODT-T201301879

PATIENT
  Sex: Female

DRUGS (2)
  1. METHYLIN ER [Suspect]
     Indication: ATTENTION DEFICIT/HYPERACTIVITY DISORDER
     Dosage: 20 MG, UNK
     Route: 048
  2. SERTRALINE [Concomitant]
     Indication: PRODUCT USED FOR UNKNOWN INDICATION
     Dosage: 25 MG, QD

REACTIONS (1)
  - Tic [Unknown]
